FAERS Safety Report 10222825 (Version 2)
Quarter: 2014Q3

REPORT INFORMATION
  Report Type: Spontaneous
  Country: US (occurrence: US)
  Receive Date: 20140606
  Receipt Date: 20140731
  Transmission Date: 20150326
  Serious: No
  Sender: FDA-Public Use
  Company Number: US-009507513-1406USA002843

PATIENT
  Age: 28 Year
  Sex: Female

DRUGS (2)
  1. NEXPLANON [Suspect]
     Active Substance: ETONOGESTREL
     Dosage: 1 ROD, ONCE EVERY 3 YEARS
     Route: 059
     Dates: start: 20140529, end: 20140529
  2. NEXPLANON [Suspect]
     Active Substance: ETONOGESTREL
     Dosage: INSERTED SUCCESSFULLY ONE WEEK LATER
     Route: 059
     Dates: start: 201406

REACTIONS (2)
  - Device expulsion [Recovered/Resolved]
  - No adverse event [Unknown]

NARRATIVE: CASE EVENT DATE: 20140529
